FAERS Safety Report 7131885-6 (Version None)
Quarter: 2010Q4

REPORT INFORMATION
  Report Type: 
  Country: None (occurrence: None)
  Receive Date: 20101202
  Receipt Date: 20101122
  Transmission Date: 20110411
  Serious: Yes (Hospitalization)
  Sender: FDA-Public Use
  Company Number: CA-CELGENEUS-028-C5013-10112629

PATIENT
  Sex: Male
  Weight: 91 kg

DRUGS (6)
  1. THALIDOMIDE [Suspect]
     Indication: MULTIPLE MYELOMA
     Route: 048
     Dates: start: 20100506
  2. THALIDOMIDE [Suspect]
     Route: 048
     Dates: start: 20101104
  3. MELPHALAN HYDROCHLORIDE [Suspect]
     Indication: MULTIPLE MYELOMA
     Route: 065
     Dates: start: 20100506
  4. MELPHALAN HYDROCHLORIDE [Suspect]
     Route: 065
     Dates: start: 20101104, end: 20101107
  5. PREDNISONE [Suspect]
     Indication: MULTIPLE MYELOMA
     Route: 065
     Dates: start: 20100506
  6. PREDNISONE [Suspect]
     Route: 065
     Dates: start: 20101104, end: 20101107

REACTIONS (3)
  - ILIUM FRACTURE [None]
  - LOCALISED INTRAABDOMINAL FLUID COLLECTION [None]
  - SEPSIS [None]
